FAERS Safety Report 10254801 (Version 1)
Quarter: 2014Q2

REPORT INFORMATION
  Report Type: Spontaneous
  Country: US (occurrence: US)
  Receive Date: 20140624
  Receipt Date: 20140624
  Transmission Date: 20141212
  Serious: No
  Sender: FDA-Public Use
  Company Number: US-B.I. PHARMACEUTICALS,INC./RIDGEFIELD-2014-BI-27395BP

PATIENT
  Age: 65 Year
  Sex: Male
  Weight: 127 kg

DRUGS (2)
  1. SPIRIVA [Suspect]
     Indication: IDIOPATHIC PULMONARY FIBROSIS
     Dosage: 18 MCG
     Route: 048
     Dates: start: 20140617, end: 20140617
  2. SPIRIVA [Suspect]
     Dosage: 18 MCG
     Route: 055
     Dates: start: 201406

REACTIONS (2)
  - Off label use [Unknown]
  - Incorrect route of drug administration [Recovered/Resolved]
